FAERS Safety Report 19642996 (Version 1)
Quarter: 2021Q3

REPORT INFORMATION
  Report Type: Spontaneous
  Country: FR (occurrence: FR)
  Receive Date: 20210731
  Receipt Date: 20210731
  Transmission Date: 20211014
  Serious: Yes (Disabling)
  Sender: FDA-Public Use
  Company Number: NVSC2021FR165026

PATIENT
  Age: 65 Year
  Sex: Male
  Weight: 82 kg

DRUGS (3)
  1. MEKINIST [Suspect]
     Active Substance: TRAMETINIB DIMETHYL SULFOXIDE
     Indication: MALIGNANT MELANOMA
     Dosage: 2 MG, QD
     Route: 048
     Dates: start: 20200915, end: 20210607
  2. DOXYCYCLINE. [Suspect]
     Active Substance: DOXYCYCLINE
     Indication: MALIGNANT MELANOMA
     Dosage: UNK
     Route: 048
     Dates: start: 202011
  3. FORTZAAR [Suspect]
     Active Substance: HYDROCHLOROTHIAZIDE\LOSARTAN POTASSIUM
     Indication: HYPERTENSION
     Dosage: UNK
     Route: 048
     Dates: start: 2021

REACTIONS (1)
  - Ulcerative keratitis [Recovered/Resolved]

NARRATIVE: CASE EVENT DATE: 20210526
